FAERS Safety Report 20994288 (Version 2)
Quarter: 2022Q3

REPORT INFORMATION
  Report Type: Spontaneous
  Country: BR (occurrence: BR)
  Receive Date: 20220622
  Receipt Date: 20220708
  Transmission Date: 20221027
  Serious: Yes (Other)
  Sender: FDA-Public Use
  Company Number: BR-MYLANLABS-2022M1046805

PATIENT
  Age: 33 Year
  Sex: Female

DRUGS (8)
  1. OXALIPLATIN [Suspect]
     Active Substance: OXALIPLATIN
     Indication: Hodgkin^s disease
     Dosage: RECEIVED ONE CYCLE
     Route: 065
     Dates: start: 202101
  2. ADRIAMYCIN [Suspect]
     Active Substance: DOXORUBICIN HYDROCHLORIDE
     Indication: Hodgkin^s disease
     Dosage: RECEIVED SIX CYCLES
     Route: 065
     Dates: start: 201912, end: 202008
  3. VINBLASTINE SULFATE [Suspect]
     Active Substance: VINBLASTINE SULFATE
     Indication: Hodgkin^s disease
     Dosage: RECEIVED SIX CYCLES
     Route: 065
     Dates: start: 201912, end: 202008
  4. GEMCITABINE [Suspect]
     Active Substance: GEMCITABINE
     Indication: Hodgkin^s disease
     Dosage: RECEIVED ONE CYCLE
     Route: 065
     Dates: start: 202101
  5. DACARBAZINE [Suspect]
     Active Substance: DACARBAZINE
     Indication: Hodgkin^s disease
     Dosage: RECEIVED SIX CYCLES
     Route: 065
     Dates: start: 201912, end: 202008
  6. IFOSFAMIDE [Concomitant]
     Active Substance: IFOSFAMIDE
     Indication: Hodgkin^s disease
     Dosage: RECEIVED 2 CYCLES
     Route: 065
     Dates: start: 202010, end: 202011
  7. CARBOPLATIN [Concomitant]
     Active Substance: CARBOPLATIN
     Indication: Hodgkin^s disease
     Dosage: RECEIVED 2 CYCLES
     Route: 065
     Dates: start: 202010, end: 202011
  8. ETOPOSIDE [Concomitant]
     Active Substance: ETOPOSIDE
     Indication: Hodgkin^s disease
     Dosage: RECEIVED 2 CYCLES
     Route: 065
     Dates: start: 202010, end: 202011

REACTIONS (2)
  - Drug ineffective [Unknown]
  - Disease progression [Unknown]
